FAERS Safety Report 8519179-5 (Version None)
Quarter: 2012Q3

REPORT INFORMATION
  Report Type: 
  Country: None (occurrence: None)
  Receive Date: 20120718
  Receipt Date: 20120711
  Transmission Date: 20120928
  Serious: Yes (Hospitalization)
  Sender: FDA-Public Use
  Company Number: US-CELGENEUS-163-21880-12020161

PATIENT
  Sex: Female

DRUGS (19)
  1. SYNTHROID [Concomitant]
     Dosage: 75 MICROGRAM
     Route: 048
  2. OMEPRAZOLE [Concomitant]
     Dosage: 20 MILLIGRAM
     Route: 048
  3. COZAAR [Concomitant]
     Dosage: 25 MILLIGRAM
     Route: 048
  4. FLEXERIL [Concomitant]
     Dosage: 10 MILLIGRAM
     Route: 048
  5. ONDANSETRON [Concomitant]
     Dosage: 4 MILLIGRAM
     Route: 048
  6. WHOLE BLOOD [Concomitant]
     Dosage: ONE UNIT
     Route: 041
     Dates: start: 20120101, end: 20120101
  7. ASPIRIN [Concomitant]
     Dosage: 81 MILLIGRAM
     Route: 048
  8. NORVASC [Concomitant]
     Dosage: 5 MILLIGRAM
     Route: 048
  9. VELCADE [Concomitant]
     Indication: MULTIPLE MYELOMA
     Route: 065
  10. MULTI-VITAMINS [Concomitant]
     Route: 065
  11. NIASPAN [Concomitant]
     Dosage: 2 TABLET
     Route: 048
  12. REVLIMID [Suspect]
     Indication: MULTIPLE MYELOMA
     Dosage: 25 MILLIGRAM
     Route: 048
     Dates: start: 20111213, end: 20120106
  13. REVLIMID [Suspect]
     Dosage: 25 MILLIGRAM
     Route: 048
     Dates: start: 20120128
  14. CLEMASTINE FURARATE [Concomitant]
     Dosage: 1 TABLET
     Route: 048
  15. VAGIFEM [Concomitant]
     Dosage: 10 MICROGRAM
     Route: 067
  16. TRAMADOL HYDROCHLORIDE AND ACETAMINOPHEN [Concomitant]
     Dosage: 2 TABLET
     Route: 048
  17. ANTIBIOTICS [Concomitant]
     Indication: PREOPERATIVE CARE
     Route: 065
     Dates: start: 20120101, end: 20120101
  18. DEXAMETHASONE [Concomitant]
     Indication: MULTIPLE MYELOMA
     Dosage: 4 MILLIGRAM
     Route: 048
  19. DILAUDID [Concomitant]
     Dosage: 2 MILLIGRAM
     Route: 048

REACTIONS (2)
  - BILIARY COLIC [None]
  - BLOOD PRESSURE INADEQUATELY CONTROLLED [None]
